FAERS Safety Report 7466640-0 (Version None)
Quarter: 2011Q1

REPORT INFORMATION
  Report Type: 
  Country: None (occurrence: None)
  Receive Date: 20110302
  Receipt Date: 20100830
  Transmission Date: 20110831
  Serious: Yes (Other)
  Sender: FDA-Public Use
  Company Number: 163-21880-10062672

PATIENT
  Age: 73 Year
  Sex: Female

DRUGS (8)
  1. AREDIA [Concomitant]
  2. REVLIMID [Suspect]
     Indication: MULTIPLE MYELOMA
     Dosage: 10 MG, PO, 5 MG, 1 IN 1 D, PO
     Route: 048
     Dates: start: 20091209
  3. REVLIMID [Suspect]
     Indication: MULTIPLE MYELOMA
     Dosage: 10 MG, PO, 5 MG, 1 IN 1 D, PO
     Route: 048
     Dates: start: 20100503
  4. DIOVAN HCT (CO-DIOVAN) [Concomitant]
  5. PREDNISONE [Concomitant]
  6. LYRICA [Concomitant]
  7. DEXAMETHASONE [Concomitant]
  8. MELPHALAN HYDROCHLORIDE [Concomitant]

REACTIONS (7)
  - HYPERSENSITIVITY [None]
  - TENDONITIS [None]
  - RASH PRURITIC [None]
  - ROTATOR CUFF SYNDROME [None]
  - URTICARIA [None]
  - MUSCULOSKELETAL PAIN [None]
  - ARTHRALGIA [None]
